FAERS Safety Report 21038684 (Version 1)
Quarter: 2022Q3

REPORT INFORMATION
  Report Type: Spontaneous
  Country: RO (occurrence: RO)
  Receive Date: 20220704
  Receipt Date: 20220704
  Transmission Date: 20221026
  Serious: Yes (Other)
  Sender: FDA-Public Use
  Company Number: RO-BRISTOL-MYERS SQUIBB COMPANY-2022-061335

PATIENT
  Age: 79 Year
  Sex: Male

DRUGS (2)
  1. REBLOZYL [Suspect]
     Active Substance: LUSPATERCEPT-AAMT
     Indication: Thalassaemia beta
     Dosage: DOSE : 1 MG/KG, 1,33 MG/KG,;     FREQ : UNAVAILABLE
  2. REBLOZYL [Suspect]
     Active Substance: LUSPATERCEPT-AAMT

REACTIONS (4)
  - Haemoglobin decreased [Unknown]
  - Leukocytosis [Unknown]
  - Monocytosis [Unknown]
  - Neutropenia [Unknown]
